FAERS Safety Report 5368573-2 (Version None)
Quarter: 2007Q2

REPORT INFORMATION
  Report Type: 
  Country: None (occurrence: None)
  Receive Date: 20070625
  Receipt Date: 20070619
  Transmission Date: 20071010
  Serious: Yes (Hospitalization)
  Sender: FDA-Public Use
  Company Number: US-AVENTIS-200715522GDDC

PATIENT
  Age: 50 Year
  Sex: Female

DRUGS (1)
  1. INSULIN GLARGINE [Suspect]
     Route: 058
     Dates: start: 20011011, end: 20061016

REACTIONS (2)
  - CONDITION AGGRAVATED [None]
  - RETINOPATHY [None]
